FAERS Safety Report 6161123-2 (Version None)
Quarter: 2009Q2

REPORT INFORMATION
  Report Type: 
  Country: None (occurrence: None)
  Receive Date: 20090417
  Receipt Date: 20090417
  Transmission Date: 20091009
  Serious: Yes (Other)
  Sender: FDA-Public Use
  Company Number: None

PATIENT
  Age: 59 Year
  Sex: Female
  Weight: 58.0604 kg

DRUGS (1)
  1. HUMIRA [Suspect]
     Indication: CROHN'S DISEASE
     Dosage: INJECTION EVERY 2 WKS
     Dates: end: 20090311

REACTIONS (4)
  - EYE SWELLING [None]
  - RASH PRURITIC [None]
  - SKIN EXFOLIATION [None]
  - SWELLING [None]
